FAERS Safety Report 10595942 (Version 3)
Quarter: 2014Q4

REPORT INFORMATION
  Report Type: Spontaneous
  Country: BR (occurrence: BR)
  Receive Date: 20141120
  Receipt Date: 20141201
  Transmission Date: 20150529
  Serious: Yes (Hospitalization, Other)
  Sender: FDA-Public Use
  Company Number: BR-PFIZER INC-2014306484

PATIENT
  Age: 52 Year
  Sex: Female

DRUGS (4)
  1. TRANSAMIN [Suspect]
     Active Substance: TRANEXAMIC ACID
     Indication: MENORRHAGIA
     Dosage: 3X/DAY, FOR 5 DAYS
     Dates: start: 20140808, end: 20140812
  2. MEFENAMIC-ACID [Suspect]
     Active Substance: MEFENAMIC ACID
     Indication: ANTIINFLAMMATORY THERAPY
  3. MEFENAMIC-ACID [Suspect]
     Active Substance: MEFENAMIC ACID
     Indication: MENORRHAGIA
     Dosage: 3X/DAY, FOR 5 DAYS
     Dates: start: 20140808, end: 20140812
  4. DEPO-PROVERA [Suspect]
     Active Substance: MEDROXYPROGESTERONE ACETATE
     Indication: MENORRHAGIA
     Dosage: 150 MG, EVERY 3 MONTHS
     Dates: start: 20140808, end: 20140808

REACTIONS (3)
  - Endometrial hypertrophy [Recovering/Resolving]
  - Drug effect incomplete [Not Recovered/Not Resolved]
  - Drug ineffective for unapproved indication [Not Recovered/Not Resolved]

NARRATIVE: CASE EVENT DATE: 2014
